FAERS Safety Report 12286997 (Version 1)
Quarter: 2016Q2

REPORT INFORMATION
  Report Type: Spontaneous
  Country: US (occurrence: US)
  Receive Date: 20160420
  Receipt Date: 20160420
  Transmission Date: 20160815
  Serious: Yes (Other)
  Sender: FDA-Public Use
  Company Number: US-ELI_LILLY_AND_COMPANY-US201604003438

PATIENT
  Age: 73 Year
  Sex: Male

DRUGS (4)
  1. RADIOTHERAPY [Concomitant]
     Active Substance: RADIATION THERAPY
     Indication: ADENOCARCINOMA PANCREAS
     Dosage: UNK, UNKNOWN
  2. OXALIPLATIN. [Suspect]
     Active Substance: OXALIPLATIN
     Indication: ADENOCARCINOMA PANCREAS
     Dosage: UNK, UNKNOWN
     Route: 065
  3. CAPECITABINE. [Suspect]
     Active Substance: CAPECITABINE
     Indication: ADENOCARCINOMA PANCREAS
     Dosage: UNK, UNKNOWN
     Route: 065
  4. GEMCITABINE HYDROCHLORIDE. [Suspect]
     Active Substance: GEMCITABINE HYDROCHLORIDE
     Indication: ADENOCARCINOMA PANCREAS
     Dosage: UNK, UNKNOWN
     Route: 065

REACTIONS (3)
  - Drug intolerance [Recovered/Resolved]
  - Duodenal ulcer [Recovered/Resolved]
  - Biliary fistula [Recovered/Resolved]
